FAERS Safety Report 19305318 (Version 1)
Quarter: 2021Q2

REPORT INFORMATION
  Report Type: Report from Study
  Country: CA (occurrence: CA)
  Receive Date: 20210525
  Receipt Date: 20210525
  Transmission Date: 20210717
  Serious: Yes (Hospitalization, Other)
  Sender: FDA-Public Use
  Company Number: NVSC2021CA101171

PATIENT
  Age: 49 Year
  Sex: Male

DRUGS (1)
  1. MAYZENT [Suspect]
     Active Substance: SIPONIMOD
     Indication: SECONDARY PROGRESSIVE MULTIPLE SCLEROSIS
     Dosage: UNK
     Route: 048
     Dates: start: 20210126

REACTIONS (3)
  - Gait inability [Unknown]
  - Multiple sclerosis relapse [Unknown]
  - Paralysis [Unknown]

NARRATIVE: CASE EVENT DATE: 20210502
